FAERS Safety Report 22232967 (Version 1)
Quarter: 2023Q2

REPORT INFORMATION
  Report Type: Spontaneous
  Country: US (occurrence: None)
  Receive Date: 20230418
  Receipt Date: 20230418
  Transmission Date: 20230721
  Serious: Yes (Hospitalization)
  Sender: FDA-Public Use
  Company Number: None

PATIENT
  Sex: Male

DRUGS (1)
  1. ORENCIA [Suspect]
     Active Substance: ABATACEPT
     Indication: Rheumatoid arthritis
     Dosage: INJECT 125 MG UNDER THE SKIN (SUBCUTANEOUS INJECTION) ONCE A WEEK
     Route: 058
     Dates: start: 20200207

REACTIONS (2)
  - Therapeutic product ineffective [None]
  - Intentional dose omission [None]
